FAERS Safety Report 13521510 (Version 1)
Quarter: 2017Q2

REPORT INFORMATION
  Report Type: Other
  Country: GB (occurrence: GB)
  Receive Date: 20170508
  Receipt Date: 20170508
  Transmission Date: 20170830
  Serious: Yes (Life-Threatening, Hospitalization, Other)
  Sender: FDA-Public Use
  Company Number: GB-LUPIN PHARMACEUTICALS INC.-2017-02109

PATIENT
  Age: 19 Year
  Sex: Female
  Weight: 57 kg

DRUGS (1)
  1. MUNALEA [Suspect]
     Active Substance: DESOGESTREL\ETHINYL ESTRADIOL
     Indication: ORAL CONTRACEPTION
     Dosage: 150/30 MICROGRAMS, QD
     Route: 048
     Dates: start: 2015, end: 20170313

REACTIONS (6)
  - Circulatory collapse [Unknown]
  - Atrioventricular block [Unknown]
  - Dyspnoea [Unknown]
  - Chest pain [Unknown]
  - Pulmonary embolism [Recovering/Resolving]
  - Cor pulmonale [Recovering/Resolving]

NARRATIVE: CASE EVENT DATE: 20170313
